FAERS Safety Report 5251973-9 (Version None)
Quarter: 2007Q1

REPORT INFORMATION
  Report Type: 
  Country: None (occurrence: None)
  Receive Date: 20070223
  Receipt Date: 20070213
  Transmission Date: 20070707
  Serious: Yes (Death, Other)
  Sender: FDA-Public Use
  Company Number: 163-21880-07010775

PATIENT
  Age: 77 Year
  Sex: Male

DRUGS (1)
  1. REVLIMID [Suspect]
     Indication: MULTIPLE MYELOMA
     Dosage: 25 MG, X21 DAYS WITH 1 WEEKS OFF, ORAL
     Route: 048
     Dates: start: 20061019, end: 20061211

REACTIONS (4)
  - ASTHENIA [None]
  - DIARRHOEA [None]
  - FEELING COLD [None]
  - SUDDEN DEATH [None]
